FAERS Safety Report 6373527-3 (Version None)
Quarter: 2009Q3

REPORT INFORMATION
  Report Type: 
  Country: None (occurrence: None)
  Receive Date: 20090924
  Receipt Date: 20090216
  Transmission Date: 20100115
  Serious: No
  Sender: FDA-Public Use
  Company Number: US-ASTRAZENECA-2009UW04415

PATIENT
  Sex: Male

DRUGS (1)
  1. SEROQUEL [Suspect]
     Dosage: UNKNOWN
     Route: 048
     Dates: start: 19970216

REACTIONS (4)
  - ABDOMINAL PAIN UPPER [None]
  - HALLUCINATION, AUDITORY [None]
  - INSOMNIA [None]
  - SPEECH DISORDER [None]
